FAERS Safety Report 25094639 (Version 1)
Quarter: 2025Q1

REPORT INFORMATION
  Report Type: Spontaneous
  Country: US (occurrence: None)
  Receive Date: 20250318
  Receipt Date: 20250318
  Transmission Date: 20250408
  Serious: Yes (unspecified)
  Sender: FDA-CTU
  Company Number: None

PATIENT
  Age: 27 Year
  Sex: Female

DRUGS (1)
  1. SINEX [Suspect]
     Active Substance: ACETAMINOPHEN\DOXYLAMINE SUCCINATE\PHENYLEPHRINE HYDROCHLORIDE
     Indication: Nasal congestion
     Dates: start: 20231218, end: 20250305

REACTIONS (2)
  - Dyspnoea [None]
  - Rebound nasal congestion [None]

NARRATIVE: CASE EVENT DATE: 20250304
